FAERS Safety Report 8064782-2 (Version None)
Quarter: 2012Q1

REPORT INFORMATION
  Report Type: 
  Country: None (occurrence: None)
  Receive Date: 20120124
  Receipt Date: 20120117
  Transmission Date: 20120608
  Serious: Yes (Hospitalization)
  Sender: FDA-Public Use
  Company Number: US-BIOGENIDEC-2011BI007971

PATIENT
  Age: 56 Year
  Sex: Male

DRUGS (1)
  1. TYSABRI [Suspect]
     Indication: MULTIPLE SCLEROSIS
     Route: 042
     Dates: start: 20090311, end: 20111212

REACTIONS (6)
  - SURGERY [None]
  - POST PROCEDURAL COMPLICATION [None]
  - PAIN [None]
  - PAIN IN EXTREMITY [None]
  - BACK DISORDER [None]
  - ATRIAL FIBRILLATION [None]
